FAERS Safety Report 9925097 (Version 1)
Quarter: 2014Q1

REPORT INFORMATION
  Report Type: Spontaneous
  Country: US (occurrence: US)
  Receive Date: 20140226
  Receipt Date: 20140226
  Transmission Date: 20141002
  Serious: Yes (Other)
  Sender: FDA-Public Use
  Company Number: US-BAYER-2014-029943

PATIENT
  Age: 75 Year
  Sex: Male
  Weight: 57 kg

DRUGS (1)
  1. ALKA-SELTZER PLUS MAX COUGH, MUCUS + CONGESTION LIQUID GELS [Suspect]
     Dosage: 2 DF, PRN
     Route: 048
     Dates: start: 20140222

REACTIONS (1)
  - Choking [Recovered/Resolved]
